FAERS Safety Report 10916934 (Version 1)
Quarter: 2015Q1

REPORT INFORMATION
  Report Type: Spontaneous
  Country: US (occurrence: None)
  Receive Date: 20150312
  Receipt Date: 20150312
  Transmission Date: 20150721
  Serious: Yes (Other)
  Sender: FDA-Public Use
  Company Number: None

PATIENT
  Age: 40 Year
  Sex: Male
  Weight: 81.65 kg

DRUGS (9)
  1. LEXAPRO [Concomitant]
     Active Substance: ESCITALOPRAM OXALATE
  2. LANTUS [Suspect]
     Active Substance: INSULIN GLARGINE
     Indication: TYPE 2 DIABETES MELLITUS
     Dosage: LANTUS 100 UNITS/ML INJ TWICE DAILY GIVEN INTO/UNDER THE SKIN
     Route: 058
  3. FOROSEMIDETERAZOSINAMLODIPINE TRANSCODING [Concomitant]
  4. ALBUTEROL. [Concomitant]
     Active Substance: ALBUTEROL
  5. BENADRYL [Concomitant]
     Active Substance: DIPHENHYDRAMINE HYDROCHLORIDE
  6. LANTOS [Concomitant]
  7. LORRAINE [Concomitant]
  8. MONTELUKAST HYDROXYL [Concomitant]
  9. OMAPRAZOPREDNISONE [Concomitant]

REACTIONS (3)
  - Nightmare [None]
  - Headache [None]
  - Unevaluable event [None]

NARRATIVE: CASE EVENT DATE: 20071122
